FAERS Safety Report 4766379-6 (Version None)
Quarter: 2005Q3

REPORT INFORMATION
  Report Type: 
  Country: None (occurrence: None)
  Receive Date: 20050912
  Receipt Date: 20050831
  Transmission Date: 20060218
  Serious: Yes (Hospitalization)
  Sender: FDA-Public Use
  Company Number: FR-SANOFI-SYNTHELABO-A02200502319

PATIENT
  Age: 83 Year
  Sex: Male

DRUGS (5)
  1. STILNOX [Suspect]
     Indication: DRUG USE FOR UNKNOWN INDICATION
     Route: 048
  2. DIFFU K [Suspect]
     Indication: DRUG USE FOR UNKNOWN INDICATION
     Dosage: 1.2 MG
     Route: 048
     Dates: end: 20050707
  3. FUROSEMIDE [Suspect]
     Indication: DRUG USE FOR UNKNOWN INDICATION
     Dosage: 2 DF
     Route: 048
  4. ISOSORBIDE DINITRATE [Suspect]
     Indication: DRUG USE FOR UNKNOWN INDICATION
     Route: 048
  5. TRIATEC [Suspect]
     Indication: DRUG USE FOR UNKNOWN INDICATION
     Dosage: 5 MG
     Route: 048

REACTIONS (1)
  - TOXIC SKIN ERUPTION [None]
